FAERS Safety Report 5930661-7 (Version None)
Quarter: 2008Q4

REPORT INFORMATION
  Report Type: 
  Country: None (occurrence: None)
  Receive Date: 20081027
  Receipt Date: 20081021
  Transmission Date: 20090506
  Serious: Yes (Hospitalization, Other)
  Sender: FDA-Public Use
  Company Number: US-BAYER-200827969GPV

PATIENT
  Age: 60 Year
  Sex: Male

DRUGS (12)
  1. SORAFENIB [Suspect]
     Indication: METASTATIC RENAL CELL CARCINOMA
     Route: 048
     Dates: start: 20080402, end: 20080916
  2. AMG 386 OR PLACEBO [Suspect]
     Indication: METASTATIC RENAL CELL CARCINOMA
     Route: 042
     Dates: start: 20080723, end: 20080916
  3. DRONABINOL [Concomitant]
     Indication: DRUG USE FOR UNKNOWN INDICATION
     Route: 048
  4. METOCLOPRAMIDE [Concomitant]
     Indication: DRUG USE FOR UNKNOWN INDICATION
     Route: 048
  5. OXYCODONE HCL [Concomitant]
     Indication: DRUG USE FOR UNKNOWN INDICATION
     Route: 048
  6. DOCUSATE [Concomitant]
     Route: 065
  7. PROCHLORPERAZINE EDISYLATE [Concomitant]
     Indication: DRUG USE FOR UNKNOWN INDICATION
     Route: 048
  8. ACETAMINOPHEN [Concomitant]
     Indication: DRUG USE FOR UNKNOWN INDICATION
     Route: 065
  9. RED BLOOD CELLS [Concomitant]
     Indication: ANAEMIA
     Route: 042
  10. LACTULOSE [Concomitant]
     Indication: CONSTIPATION
     Route: 065
  11. ENEMA [Concomitant]
     Indication: CONSTIPATION
     Route: 065
  12. NYSTATIN [Concomitant]
     Indication: CANDIDIASIS
     Route: 048

REACTIONS (3)
  - ASTHENIA [None]
  - INCOHERENT [None]
  - METASTATIC RENAL CELL CARCINOMA [None]
